FAERS Safety Report 12808617 (Version 1)
Quarter: 2016Q4

REPORT INFORMATION
  Report Type: Report from Study
  Country: GB (occurrence: GB)
  Receive Date: 20161004
  Receipt Date: 20161004
  Transmission Date: 20170207
  Serious: Yes (Hospitalization, Other)
  Sender: FDA-Public Use
  Company Number: GB-INCYTE CORPORATION-2016IN004618

PATIENT
  Age: 73 Year
  Sex: Female
  Weight: 54.75 kg

DRUGS (2)
  1. WARFARIN [Concomitant]
     Active Substance: WARFARIN
     Indication: PRODUCT USED FOR UNKNOWN INDICATION
     Dosage: UNK
     Route: 065
     Dates: start: 20140321, end: 20150724
  2. JAKAVI [Suspect]
     Active Substance: RUXOLITINIB
     Indication: MYELOFIBROSIS
     Dosage: 20 MG, UNK
     Route: 065
     Dates: start: 20130318

REACTIONS (4)
  - Portal vein thrombosis [Recovered/Resolved]
  - Peritonitis bacterial [Recovered/Resolved with Sequelae]
  - Arthralgia [Unknown]
  - Clostridial infection [Unknown]

NARRATIVE: CASE EVENT DATE: 20150520
